FAERS Safety Report 16535845 (Version 4)
Quarter: 2019Q3

REPORT INFORMATION
  Report Type: Report from Study
  Country: None (occurrence: US)
  Receive Date: 20190705
  Receipt Date: 20190812
  Transmission Date: 20191004
  Serious: Yes (Hospitalization)
  Sender: FDA-Public Use
  Company Number: US-ABBVIE-19K-163-2843555-00

PATIENT
  Age: 72 Year
  Sex: Male
  Weight: 97.61 kg

DRUGS (9)
  1. LOVASTATIN. [Concomitant]
     Active Substance: LOVASTATIN
     Indication: HYPERCHOLESTEROLAEMIA
  2. MELATONIN [Concomitant]
     Active Substance: MELATONIN
     Indication: INSOMNIA
  3. BACLOFEN. [Concomitant]
     Active Substance: BACLOFEN
     Indication: MUSCLE SPASMS
  4. MEMANTINE. [Concomitant]
     Active Substance: MEMANTINE
     Indication: AMNESIA
  5. RIVASTIGMINE. [Concomitant]
     Active Substance: RIVASTIGMINE
     Indication: AMNESIA
  6. DUOPA [Suspect]
     Active Substance: CARBIDOPA\LEVODOPA
     Indication: PARKINSON^S DISEASE
     Route: 050
     Dates: start: 20181015
  7. NORTRIPTYLINE [Concomitant]
     Active Substance: NORTRIPTYLINE
     Indication: PARKINSON^S DISEASE
  8. VITAMIN D3 [Concomitant]
     Active Substance: CHOLECALCIFEROL
     Indication: VITAMIN SUPPLEMENTATION
  9. FINASTERIDE. [Concomitant]
     Active Substance: FINASTERIDE
     Indication: BENIGN PROSTATIC HYPERPLASIA

REACTIONS (18)
  - Dehydration [Recovered/Resolved]
  - Leukocytosis [Recovered/Resolved]
  - Hypertension [Not Recovered/Not Resolved]
  - Urinary retention [Not Recovered/Not Resolved]
  - Catheter site vesicles [Recovering/Resolving]
  - Fall [Unknown]
  - Acute kidney injury [Recovered/Resolved]
  - Fall [Unknown]
  - Urinary incontinence [Not Recovered/Not Resolved]
  - Catheter placement [Not Recovered/Not Resolved]
  - Blood urea increased [Recovered/Resolved]
  - Pyrexia [Recovered/Resolved]
  - Constipation [Recovered/Resolved]
  - Blood creatinine increased [Recovered/Resolved]
  - Delirium [Recovered/Resolved]
  - Diarrhoea [Recovered/Resolved]
  - Hydrocele [Not Recovered/Not Resolved]
  - Asthenia [Recovered/Resolved]

NARRATIVE: CASE EVENT DATE: 201906
